FAERS Safety Report 16734989 (Version 1)
Quarter: 2019Q3

REPORT INFORMATION
  Report Type: Spontaneous
  Country: AU (occurrence: AU)
  Receive Date: 20190823
  Receipt Date: 20190823
  Transmission Date: 20191005
  Serious: Yes (Hospitalization)
  Sender: FDA-Public Use
  Company Number: AU-ASTRAZENECA-2019SF19543

PATIENT
  Sex: Female

DRUGS (3)
  1. IRESSA [Suspect]
     Active Substance: GEFITINIB
     Indication: EGFR GENE MUTATION
     Route: 048
  2. IRESSA [Suspect]
     Active Substance: GEFITINIB
     Indication: NON-SMALL CELL LUNG CANCER
     Route: 048
  3. IRESSA [Suspect]
     Active Substance: GEFITINIB
     Indication: METASTASIS
     Route: 048

REACTIONS (3)
  - Post thrombotic syndrome [Unknown]
  - Drug intolerance [Unknown]
  - Rash [Unknown]
